FAERS Safety Report 23113489 (Version 3)
Quarter: 2023Q4

REPORT INFORMATION
  Report Type: Report from Study
  Country: CA (occurrence: CA)
  Receive Date: 20231027
  Receipt Date: 20231107
  Transmission Date: 20240109
  Serious: Yes (Hospitalization)
  Sender: FDA-Public Use
  Company Number: CA-ABBVIE-5468461

PATIENT
  Sex: Female

DRUGS (3)
  1. SKYRIZI [Suspect]
     Active Substance: RISANKIZUMAB-RZAA
     Indication: Crohn^s disease
     Dosage: WEEK 4??DISCONTINUED IN 2023
     Route: 042
     Dates: start: 20230829
  2. SKYRIZI [Suspect]
     Active Substance: RISANKIZUMAB-RZAA
     Indication: Crohn^s disease
     Dosage: WEEK 0 FIRST AND LAST ADMIN 2023
     Route: 042
  3. SKYRIZI [Suspect]
     Active Substance: RISANKIZUMAB-RZAA
     Indication: Crohn^s disease
     Dosage: WEEK 8 FIRST 2023
     Route: 042

REACTIONS (6)
  - Urosepsis [Recovered/Resolved]
  - Blood iron decreased [Recovering/Resolving]
  - Immunosuppression [Unknown]
  - Haemoglobin decreased [Unknown]
  - Leukocytosis [Unknown]
  - General symptom [Unknown]

NARRATIVE: CASE EVENT DATE: 20230101
